FAERS Safety Report 10153555 (Version 2)
Quarter: 2014Q2

REPORT INFORMATION
  Report Type: Report from Study
  Country: MX (occurrence: MX)
  Receive Date: 20140505
  Receipt Date: 20140505
  Transmission Date: 20141212
  Serious: Yes (Other)
  Sender: FDA-Public Use
  Company Number: PHHY2012MX091255

PATIENT
  Age: 60 Year
  Sex: Female

DRUGS (3)
  1. CO-DIOVAN [Suspect]
     Indication: HYPERTENSION
     Dosage: 1 DF (320/25 MG), PER DAY
     Route: 048
     Dates: start: 20120110
  2. ACLASTA [Concomitant]
     Dosage: UNK UKN, 1 APPLICATION PER YEAR
     Route: 042
  3. EXFORGE [Concomitant]
     Dosage: 1 DF (5/160 MG), PER DAY

REACTIONS (3)
  - Spinal disorder [Not Recovered/Not Resolved]
  - Pain [Not Recovered/Not Resolved]
  - Pain in extremity [Not Recovered/Not Resolved]
